FAERS Safety Report 20130409 (Version 2)
Quarter: 2021Q4

REPORT INFORMATION
  Report Type: Spontaneous
  Country: PL (occurrence: PL)
  Receive Date: 20211130
  Receipt Date: 20211206
  Transmission Date: 20220304
  Serious: Yes (Hospitalization, Other)
  Sender: FDA-Public Use
  Company Number: PL-KRKA-PL2021K12984LIT

PATIENT
  Age: 67 Year
  Sex: Male

DRUGS (14)
  1. TICAGRELOR [Suspect]
     Active Substance: TICAGRELOR
     Indication: Product used for unknown indication
     Dosage: 180 MILLIGRAM, QD (90 MG, 2X PER DAY)
  2. TICAGRELOR [Suspect]
     Active Substance: TICAGRELOR
     Dosage: 90 MILLIGRAM, BID
     Route: 065
  3. CLOPIDOGREL [Suspect]
     Active Substance: CLOPIDOGREL BISULFATE
     Indication: Electrocardiogram ST segment depression
     Dosage: 75 MILLIGRAM
     Route: 065
  4. CLOPIDOGREL [Suspect]
     Active Substance: CLOPIDOGREL BISULFATE
     Dosage: 600 MILLIGRAM
  5. LEVOFLOXACIN [Suspect]
     Active Substance: LEVOFLOXACIN
     Indication: COVID-19
     Dosage: UNK
  6. LEVOFLOXACIN [Concomitant]
     Active Substance: LEVOFLOXACIN
     Indication: COVID-19
     Dosage: UNK
  7. ASPIRIN [Concomitant]
     Active Substance: ASPIRIN
     Indication: Electrocardiogram ST segment depression
     Dosage: 300 MILLIGRAM
  8. ASPIRIN [Concomitant]
     Active Substance: ASPIRIN
     Dosage: 75 MILLIGRAM, QD (1X PER DAY)
  9. DOBUTAMINE [Concomitant]
     Active Substance: DOBUTAMINE HYDROCHLORIDE
     Indication: Product used for unknown indication
     Dosage: UNK
  10. NITROGLYCERIN [Concomitant]
     Active Substance: NITROGLYCERIN
     Indication: Product used for unknown indication
     Dosage: UNK
  11. EPTIFIBATIDE [Concomitant]
     Active Substance: EPTIFIBATIDE
     Dosage: UNK
  12. ENOXAPARIN [Concomitant]
     Active Substance: ENOXAPARIN
     Indication: Electrocardiogram ST segment depression
     Dosage: 40 MILLIGRAM
     Route: 058
  13. HEPARIN [Suspect]
     Active Substance: HEPARIN SODIUM
     Indication: Product used for unknown indication
     Dosage: UNK
  14. ASPIRIN [Suspect]
     Active Substance: ASPIRIN
     Indication: Product used for unknown indication
     Dosage: 75 MILLIGRAM, QD
     Route: 065

REACTIONS (9)
  - Electrocardiogram ST segment elevation [Recovered/Resolved]
  - Vascular stent thrombosis [Recovering/Resolving]
  - Rash maculo-papular [Unknown]
  - Off label use [Unknown]
  - Drug resistance [Unknown]
  - Drug ineffective [Unknown]
  - Chest pain [Recovering/Resolving]
  - Dyspnoea [Recovering/Resolving]
  - Disease recurrence [Unknown]
